FAERS Safety Report 12823247 (Version 2)
Quarter: 2016Q4

REPORT INFORMATION
  Report Type: Spontaneous
  Country: NZ (occurrence: NZ)
  Receive Date: 20161006
  Receipt Date: 20161012
  Transmission Date: 20170207
  Serious: Yes (Disabling, Other)
  Sender: FDA-Public Use
  Company Number: NZ-GILEAD-2016-0236004

PATIENT
  Age: 46 Year
  Sex: Male

DRUGS (3)
  1. ATRIPLA [Suspect]
     Active Substance: EFAVIRENZ\EMTRICITABINE\TENOFOVIR DISOPROXIL FUMARATE
     Indication: HIV INFECTION
     Dosage: 1 UNKNOWN, UNK
     Route: 048
     Dates: start: 20090521
  2. COTRIMAXAZOLE [Concomitant]
     Indication: ECZEMA
     Dosage: 960 MG, UNK
     Route: 048
     Dates: start: 20160223
  3. TRUVADA [Suspect]
     Active Substance: EMTRICITABINE\TENOFOVIR DISOPROXIL FUMARATE
     Indication: HIV INFECTION
     Route: 065

REACTIONS (2)
  - Nephrotic syndrome [Unknown]
  - Infection [Unknown]

NARRATIVE: CASE EVENT DATE: 20160801
